FAERS Safety Report 8675708 (Version 2)
Quarter: 2013Q4

REPORT INFORMATION
  Report Type: Spontaneous
  Country: US (occurrence: US)
  Receive Date: 20120720
  Receipt Date: 20131101
  Transmission Date: 20140711
  Serious: No
  Sender: FDA-Public Use
  Company Number: US-009507513-1206USA01311

PATIENT
  Sex: 0

DRUGS (2)
  1. DECADRON TABLETS [Suspect]
     Indication: HYPOTENSION
     Dosage: FOLLOWED BY TAPERING DAILY DOSES
     Route: 048
  2. HYDROCORTONE [Suspect]
     Indication: HYPOTENSION
     Dosage: FOLLOWED BY TAPERING DAILY DOSES
     Route: 048

REACTIONS (1)
  - Nervous system disorder [Unknown]
